FAERS Safety Report 7003446-0 (Version None)
Quarter: 2010Q3

REPORT INFORMATION
  Report Type: 
  Country: None (occurrence: None)
  Receive Date: 20100920
  Receipt Date: 20100914
  Transmission Date: 20110219
  Serious: Yes (Death)
  Sender: FDA-Public Use
  Company Number: JP-GENENTECH-305739

PATIENT
  Age: 83 Year
  Sex: Male

DRUGS (10)
  1. ACTIVASE [Suspect]
     Indication: CEREBRAL THROMBOSIS
     Dosage: 40 ML, QD
     Route: 042
     Dates: start: 20100806, end: 20100806
  2. ARGATROBAN [Suspect]
     Indication: CEREBRAL THROMBOSIS
     Dosage: 40 MG, QD
     Dates: start: 20100809, end: 20100811
  3. CILOSTAZOL [Suspect]
     Indication: CEREBRAL THROMBOSIS
     Dosage: 100 MG, QD
     Route: 048
     Dates: start: 20100807, end: 20100807
  4. CILOSTAZOL [Suspect]
     Dosage: 200 MG, QD
     Route: 048
     Dates: start: 20100808, end: 20100811
  5. ASPIRIN [Suspect]
     Indication: CEREBRAL THROMBOSIS
     Dosage: 100 MG, QD
     Route: 048
     Dates: start: 20100807, end: 20100811
  6. RADICUT [Concomitant]
     Indication: CEREBRAL THROMBOSIS
     Dosage: 30 MG, BID
     Dates: start: 20100806, end: 20100811
  7. PERINDOPRIL ERBUMINE [Concomitant]
     Indication: PRODUCT USED FOR UNKNOWN INDICATION
     Dosage: 2 MG, QD
     Route: 048
     Dates: start: 20100807, end: 20100811
  8. AMLODIPINE BESYLATE [Concomitant]
     Indication: PRODUCT USED FOR UNKNOWN INDICATION
     Dosage: 5 MG, QD
     Route: 048
     Dates: start: 20100807, end: 20100811
  9. LIPITOR [Concomitant]
     Indication: PRODUCT USED FOR UNKNOWN INDICATION
     Dosage: 10 MG, QD
     Route: 048
     Dates: start: 20100807, end: 20100811
  10. NITOROL R [Concomitant]
     Indication: PRODUCT USED FOR UNKNOWN INDICATION
     Dosage: 20 MG, QD
     Route: 048
     Dates: start: 20100807, end: 20100811

REACTIONS (1)
  - AORTIC ANEURYSM RUPTURE [None]
